FAERS Safety Report 4539216-2 (Version None)
Quarter: 2004Q4

REPORT INFORMATION
  Report Type: 
  Country: None (occurrence: None)
  Receive Date: 20041227
  Receipt Date: 20041227
  Transmission Date: 20050328
  Serious: Yes (Other)
  Sender: FDA-Public Use
  Company Number: None

PATIENT
  Sex: Male
  Weight: 61.6892 kg

DRUGS (2)
  1. NIASPAN [Suspect]
     Indication: HYPOLIPIDAEMIA
     Dosage: 1000 MG  1 ORAL
     Route: 048
     Dates: start: 20020714, end: 20021224
  2. VERAPAMIL [Suspect]

REACTIONS (1)
  - MEDICATION ERROR [None]
